FAERS Safety Report 23450195 (Version 2)
Quarter: 2024Q1

REPORT INFORMATION
  Report Type: Report from Study
  Country: US (occurrence: US)
  Receive Date: 20240129
  Receipt Date: 20240205
  Transmission Date: 20240410
  Serious: No
  Sender: FDA-Public Use
  Company Number: US-BIOVITRUM-2023-US-016853

PATIENT
  Age: 81 Year
  Sex: Male

DRUGS (1)
  1. KINERET [Suspect]
     Active Substance: ANAKINRA
     Indication: Product used for unknown indication
     Dosage: 100 MG QD/QF
     Route: 058

REACTIONS (3)
  - Product dose omission issue [Unknown]
  - Arthropathy [Unknown]
  - Drug ineffective [Unknown]
